FAERS Safety Report 7038058-6 (Version None)
Quarter: 2010Q4

REPORT INFORMATION
  Report Type: 
  Country: None (occurrence: None)
  Receive Date: 20101011
  Receipt Date: 20101004
  Transmission Date: 20110411
  Serious: Yes (Other)
  Sender: FDA-Public Use
  Company Number: US-PFIZER INC-2010125720

PATIENT
  Sex: Male
  Weight: 74.8 kg

DRUGS (2)
  1. LIPITOR [Suspect]
     Indication: PROPHYLAXIS
     Dosage: 40 MG, DAILY
     Route: 048
     Dates: start: 20090201, end: 20101003
  2. INDERAL [Concomitant]
     Indication: PROPHYLAXIS
     Dosage: 60 MG, UNK

REACTIONS (2)
  - ARTHRALGIA [None]
  - PLATELET COUNT DECREASED [None]
